FAERS Safety Report 12622190 (Version 2)
Quarter: 2016Q3

REPORT INFORMATION
  Report Type: Spontaneous
  Country: US (occurrence: US)
  Receive Date: 20160804
  Receipt Date: 20160815
  Transmission Date: 20161109
  Serious: No
  Sender: FDA-Public Use
  Company Number: US-ASTRAZENECA-2016SE82796

PATIENT
  Age: 91 Year
  Sex: Male
  Weight: 65.8 kg

DRUGS (1)
  1. NEXIUM 24HR [Suspect]
     Active Substance: ESOMEPRAZOLE MAGNESIUM
     Dosage: 22 MG CAPSULES, 2X/DAY (TAKING ONE EVERY 12 HOURS)
     Route: 048
     Dates: start: 201607

REACTIONS (4)
  - Pruritus generalised [Recovering/Resolving]
  - Urticaria [Recovering/Resolving]
  - Product use issue [Unknown]
  - Erythema [Recovering/Resolving]

NARRATIVE: CASE EVENT DATE: 201607
